FAERS Safety Report 10129694 (Version 2)
Quarter: 2014Q2

REPORT INFORMATION
  Report Type: Spontaneous
  Country: FR (occurrence: None)
  Receive Date: 20140424
  Receipt Date: 20140514
  Transmission Date: 20141212
  Serious: Yes (Other)
  Sender: FDA-Public Use
  Company Number: 2014-19366

PATIENT
  Age: 84 Year
  Sex: Female

DRUGS (11)
  1. EYLEA (AFLIBERCEPT) INJECTION)AFLIBERCEPT) [Suspect]
     Indication: PRODUCT USED FOR UNKNOWN INDICATION
     Dosage: ONE INJECTION IN HER LEFT EYE
     Route: 031
     Dates: start: 20131125
  2. ATROVENT (IPRATROPIUM BROMIDE) [Concomitant]
  3. VENTOLINE  (SALBUTAMOL) [Concomitant]
  4. ZITHROMAX (AZITHROMYCIN) [Concomitant]
  5. COLIMYCINE  (COLISTIN SULFATE) [Concomitant]
  6. NIFLURIL (NIFLUMIC ACID) [Concomitant]
  7. SPIRIVA [Concomitant]
  8. DACRYOSERUM (BORIC ACID, PHENYLMERCURIC BORATE, SODIUM BORATE) [Concomitant]
  9. COLIMYCINE (COLISTIMETHATE SODIUM) [Concomitant]
  10. BORIC ACID, PHENYLMERCURIC BORATE, SODIUM BORATE, SODIUM CHLORIDE (BORIC ACID, PHENYLMERCURIC BORATE, SODIUM BORATE, SODIUM CHLORIDE) [Concomitant]
  11. THEOPHYLLINE (THEOPHYLLINE) [Concomitant]

REACTIONS (2)
  - Visual impairment [None]
  - Metamorphopsia [None]
